FAERS Safety Report 9778553 (Version 1)
Quarter: 2013Q4

REPORT INFORMATION
  Report Type: Spontaneous
  Country: GB (occurrence: GB)
  Receive Date: 20131223
  Receipt Date: 20131223
  Transmission Date: 20140711
  Serious: Yes (Disabling)
  Sender: FDA-Public Use
  Company Number: GB-TEVA-451541ISR

PATIENT
  Age: 8 Month
  Sex: Male
  Weight: 5.49 kg

DRUGS (3)
  1. AMOXICILLIN [Suspect]
     Dates: start: 20131202
  2. DIPROBASE [Concomitant]
     Dates: start: 20130925, end: 20131023
  3. LACTULOSE [Concomitant]
     Dates: start: 20131113

REACTIONS (1)
  - Hyperhidrosis [Recovered/Resolved]
